FAERS Safety Report 19009682 (Version 1)
Quarter: 2021Q1

REPORT INFORMATION
  Report Type: Spontaneous
  Country: US (occurrence: US)
  Receive Date: 20210315
  Receipt Date: 20210315
  Transmission Date: 20210420
  Serious: Yes (Other)
  Sender: FDA-Public Use
  Company Number: US-INDIVIOR EUROPE LIMITED-INDV-128782-2021

PATIENT

DRUGS (1)
  1. SUBOXONE [Suspect]
     Active Substance: BUPRENORPHINE HYDROCHLORIDE\NALOXONE HYDROCHLORIDE
     Indication: PAIN
     Dosage: 8 MILLIGRAM, (TWO IN MORNING AND TWO IN EVENING)
     Route: 060

REACTIONS (9)
  - Dizziness [Unknown]
  - Prescribed overdose [Not Recovered/Not Resolved]
  - Inappropriate schedule of product administration [Not Recovered/Not Resolved]
  - Cervical vertebral fracture [Unknown]
  - Off label use [Not Recovered/Not Resolved]
  - Somnolence [Unknown]
  - Road traffic accident [Recovered/Resolved]
  - Rhinorrhoea [Unknown]
  - Drug intolerance [Unknown]
